FAERS Safety Report 6081814-1 (Version None)
Quarter: 2009Q1

REPORT INFORMATION
  Report Type: 
  Country: None (occurrence: None)
  Receive Date: 20090218
  Receipt Date: 20080208
  Transmission Date: 20090719
  Serious: No
  Sender: FDA-Public Use
  Company Number: US-BRISTOL-MYERS SQUIBB COMPANY-14071161

PATIENT
  Age: 56 Year
  Sex: Male
  Weight: 113 kg

DRUGS (13)
  1. GLUCOPHAGE [Suspect]
  2. JANUMET [Suspect]
     Dates: start: 20080101
  3. TOPROL-XL [Concomitant]
  4. LISINOPRIL [Concomitant]
  5. PLAVIX [Concomitant]
  6. ASPIRIN [Concomitant]
  7. CRESTOR [Concomitant]
  8. LEXAPRO [Concomitant]
  9. SPIRIVA [Concomitant]
  10. ADVAIR DISKUS 100/50 [Concomitant]
  11. FISH OIL [Concomitant]
  12. ASCORBIC ACID [Concomitant]
  13. SAW PALMETTO [Concomitant]

REACTIONS (4)
  - ARTHRALGIA [None]
  - ASTHMA [None]
  - INFLUENZA LIKE ILLNESS [None]
  - PAIN [None]
